FAERS Safety Report 12210512 (Version 3)
Quarter: 2016Q2

REPORT INFORMATION
  Report Type: Report from Study
  Country: US (occurrence: US)
  Receive Date: 20160325
  Receipt Date: 20160506
  Transmission Date: 20160815
  Serious: No
  Sender: FDA-Public Use
  Company Number: US-AMGEN-USASP2016035734

PATIENT
  Age: 60 Year
  Sex: Female

DRUGS (1)
  1. ENBREL [Suspect]
     Active Substance: ETANERCEPT
     Indication: PSORIATIC ARTHROPATHY
     Dosage: 50 MG, 1 WEEKLY
     Route: 065
     Dates: start: 2004

REACTIONS (4)
  - Device issue [Unknown]
  - Therapy cessation [None]
  - Product container seal issue [Unknown]
  - Gastroenteritis viral [Unknown]
